FAERS Safety Report 16700937 (Version 1)
Quarter: 2019Q3

REPORT INFORMATION
  Report Type: Spontaneous
  Country: US (occurrence: US)
  Receive Date: 20190814
  Receipt Date: 20190814
  Transmission Date: 20191004
  Serious: No
  Sender: FDA-Public Use
  Company Number: US-TEVA-2019-US-1092214

PATIENT
  Age: 79 Year
  Sex: Male

DRUGS (2)
  1. MYLAN CLONAZEPAM [Concomitant]
  2. CLONAZEPAM. [Suspect]
     Active Substance: CLONAZEPAM

REACTIONS (2)
  - Therapeutic product effect decreased [Unknown]
  - Product substitution issue [Unknown]
